FAERS Safety Report 8461386-4 (Version None)
Quarter: 2012Q2

REPORT INFORMATION
  Report Type: 
  Country: None (occurrence: None)
  Receive Date: 20120625
  Receipt Date: 20120614
  Transmission Date: 20120825
  Serious: Yes (Other)
  Sender: FDA-Public Use
  Company Number: CA-JNJFOC-20120607522

PATIENT
  Sex: Female
  Weight: 55.1 kg

DRUGS (1)
  1. INFLIXIMAB, RECOMINANT [Suspect]
     Indication: CROHN'S DISEASE
     Route: 042
     Dates: start: 20120423

REACTIONS (2)
  - DYSPNOEA [None]
  - CHEST X-RAY ABNORMAL [None]
